FAERS Safety Report 19911973 (Version 1)
Quarter: 2021Q4

REPORT INFORMATION
  Report Type: Other
  Country: US (occurrence: US)
  Receive Date: 20211004
  Receipt Date: 20211004
  Transmission Date: 20220303
  Serious: Yes (Death)
  Sender: FDA-Public Use
  Company Number: US-ROCHE-2924057

PATIENT
  Sex: Female

DRUGS (1)
  1. PULMOZYME [Suspect]
     Active Substance: DORNASE ALFA
     Indication: Bronchiectasis
     Dosage: AMPULE. NEBULIZE THE CONTENTS OF 1 VIAL(S) EVERY DAY
     Route: 065

REACTIONS (2)
  - Death [Fatal]
  - Off label use [Unknown]
